FAERS Safety Report 6960804-8 (Version None)
Quarter: 2010Q3

REPORT INFORMATION
  Report Type: 
  Country: None (occurrence: None)
  Receive Date: 20100901
  Receipt Date: 20100901
  Transmission Date: 20110219
  Serious: Yes (Hospitalization, Other)
  Sender: FDA-Public Use
  Company Number: US-PFIZER INC-2010102204

PATIENT
  Sex: Female
  Weight: 62.132 kg

DRUGS (8)
  1. GEODON [Interacting]
     Indication: BIPOLAR DISORDER
     Dosage: 10 MG, UNK
     Route: 048
  2. GEODON [Interacting]
     Dosage: 5 MG, UNK
     Route: 048
  3. ZOLOFT [Suspect]
     Dosage: UNK
     Dates: start: 19970601, end: 19970801
  4. XANAX [Interacting]
     Indication: PANIC ATTACK
     Dosage: UNK
     Route: 048
  5. XANAX [Interacting]
     Indication: ANXIETY
  6. LITHIUM [Suspect]
     Dosage: 150 MG, 2X/DAY
  7. PROPRANOLOL [Suspect]
     Indication: MOOD SWINGS
     Dosage: UNK
  8. PROTONIX [Concomitant]
     Indication: DYSPEPSIA
     Dosage: UNK

REACTIONS (14)
  - BLOOD PRESSURE DECREASED [None]
  - DEPRESSION [None]
  - DRUG INEFFECTIVE [None]
  - DRUG INTERACTION [None]
  - DRUG INTOLERANCE [None]
  - FEELING ABNORMAL [None]
  - LETHARGY [None]
  - LOSS OF CONSCIOUSNESS [None]
  - MENTAL IMPAIRMENT [None]
  - NAUSEA [None]
  - OVERDOSE [None]
  - TREMOR [None]
  - VERTIGO [None]
  - WRONG TECHNIQUE IN DRUG USAGE PROCESS [None]
